FAERS Safety Report 22782711 (Version 2)
Quarter: 2023Q4

REPORT INFORMATION
  Report Type: Spontaneous
  Country: US (occurrence: US)
  Receive Date: 20230803
  Receipt Date: 20231204
  Transmission Date: 20240109
  Serious: Yes (Other)
  Sender: FDA-Public Use
  Company Number: US-PFIZER INC-2021523562

PATIENT
  Age: 77 Year
  Sex: Female

DRUGS (2)
  1. IBRANCE [Suspect]
     Active Substance: PALBOCICLIB
     Indication: Breast cancer female
     Dosage: 1 TABLET DAILY FOR 21 DAYS, THEN OFF FOR 7 DAYS
     Route: 048
  2. IBRANCE [Suspect]
     Active Substance: PALBOCICLIB
     Dosage: 21 TABLETS PER 28 DAYS
     Dates: start: 20210316

REACTIONS (17)
  - Diverticulitis [Unknown]
  - Cataract [Unknown]
  - Hypothyroidism [Unknown]
  - Arrhythmia [Unknown]
  - Glaucoma [Unknown]
  - Neuropathy peripheral [Unknown]
  - Gastrooesophageal reflux disease [Unknown]
  - Insomnia [Unknown]
  - Neck pain [Unknown]
  - Back pain [Unknown]
  - Osteoporosis [Unknown]
  - Rib fracture [Unknown]
  - Cholelithiasis [Unknown]
  - Fungal infection [Unknown]
  - Sinus congestion [Unknown]
  - Lumbar hernia [Unknown]
  - Sleep apnoea syndrome [Unknown]
